FAERS Safety Report 7464696-2 (Version None)
Quarter: 2011Q2

REPORT INFORMATION
  Report Type: 
  Country: None (occurrence: None)
  Receive Date: 20110509
  Receipt Date: 20110322
  Transmission Date: 20111010
  Serious: Yes (Hospitalization, Other)
  Sender: FDA-Public Use
  Company Number: US-BAYER-201040281NA

PATIENT
  Sex: Female
  Weight: 86.168 kg

DRUGS (14)
  1. YASMIN [Suspect]
     Indication: PREMENSTRUAL SYNDROME
     Dosage: UNK
     Dates: start: 20080801, end: 20090901
  2. YASMIN [Suspect]
  3. IBUPROFEN [Concomitant]
  4. OMEPRAZOLE [Concomitant]
  5. DROSPIRENONE AND ETHINYL ESTRADIOL [Suspect]
     Indication: PREMENSTRUAL SYNDROME
  6. MULTI-VITAMINS [Concomitant]
  7. NUVARING [Concomitant]
  8. YAZ [Suspect]
  9. PRILOSEC [Concomitant]
  10. TRAMADOL [Concomitant]
  11. HYDROCODONE BITARTRATE AND ACETAMINOPHEN [Concomitant]
  12. ZOLOFT [Concomitant]
  13. FEXOFENADINE [Concomitant]
  14. YAZ [Suspect]
     Indication: PREMENSTRUAL SYNDROME
     Dosage: UNK
     Dates: start: 20080801, end: 20090901

REACTIONS (3)
  - INJURY [None]
  - CHOLECYSTITIS [None]
  - GALLBLADDER DISORDER [None]
